FAERS Safety Report 7975589 (Version 7)
Quarter: 2013Q1

REPORT INFORMATION
  Report Type: Spontaneous
  Country: US (occurrence: US)
  Receive Date: 20110606
  Receipt Date: 20130212
  Transmission Date: 20140127
  Serious: Yes (Hospitalization, Other)
  Sender: FDA-Public Use
  Company Number: PHHY2011US45446

PATIENT
  Age: 49 Year
  Sex: Female

DRUGS (13)
  1. GILENYA [Suspect]
     Indication: MULTIPLE SCLEROSIS
     Dosage: 0.5 MG, QD
     Route: 048
     Dates: start: 201004
  2. SOLU-MEDROL [Interacting]
     Indication: MULTIPLE SCLEROSIS
     Dosage: 500 MG, UNK
     Route: 042
     Dates: start: 20110204, end: 20110311
  3. PROZAC [Concomitant]
     Dosage: UNK UKN, UNK
  4. OXYCODONE [Concomitant]
     Dosage: UNK UKN, UNK
  5. CENTURION [Concomitant]
     Dosage: UNK UKN, UNK
  6. XANAX [Concomitant]
     Dosage: UNK UKN, UNK
  7. TIZANIDINE [Concomitant]
     Dosage: UNK UKN, UNK
  8. FAMPRIDINE [Concomitant]
     Dosage: UNK UKN, UNK
  9. LYRICA [Concomitant]
  10. AMITIZA [Concomitant]
  11. ALPRAZOLAM [Concomitant]
  12. ACETAMINOPHEN [Concomitant]
  13. VESICARE [Concomitant]

REACTIONS (9)
  - Multiple sclerosis relapse [Unknown]
  - Constipation [Unknown]
  - Faeces hard [Unknown]
  - Rectal haemorrhage [Unknown]
  - Tibia fracture [Unknown]
  - White blood cell count decreased [Recovered/Resolved]
  - Drug interaction [Unknown]
  - Eye discharge [Unknown]
  - Eye swelling [Unknown]
